FAERS Safety Report 17428061 (Version 3)
Quarter: 2022Q4

REPORT INFORMATION
  Report Type: Report from Study
  Country: ES (occurrence: ES)
  Receive Date: 20200217
  Receipt Date: 20221114
  Transmission Date: 20230112
  Serious: Yes (Hospitalization, Other)
  Sender: FDA-Public Use
  Company Number: ES-SHIRE-ALL1-2013-08062

PATIENT
  Age: 41 Year
  Sex: Male

DRUGS (11)
  1. ICATIBANT [Suspect]
     Active Substance: ICATIBANT ACETATE
     Indication: Hereditary angioedema
     Dosage: UNK
     Route: 058
     Dates: start: 20090907
  2. ICATIBANT [Suspect]
     Active Substance: ICATIBANT ACETATE
     Indication: Hereditary angioedema
     Dosage: UNK
     Route: 058
     Dates: start: 20090907
  3. RAPAMUNE [Suspect]
     Active Substance: SIROLIMUS
     Indication: Prophylaxis against transplant rejection
     Dosage: UNK, UNKNOWN
     Route: 048
     Dates: start: 20110603
  4. CORTICOSTEROID NOS [Suspect]
     Active Substance: CORTICOSTEROID NOS
     Indication: Product used for unknown indication
     Dosage: UNK, UNKNOWN
     Route: 065
     Dates: start: 20110603
  5. SULFAMETHOXAZOLE\TRIMETHOPRIM [Concomitant]
     Active Substance: SULFAMETHOXAZOLE\TRIMETHOPRIM
     Indication: Antibiotic therapy
     Dosage: 480 MILLIGRAM, BID
     Route: 048
     Dates: start: 20110603
  6. ESCITALOPRAM [Concomitant]
     Active Substance: ESCITALOPRAM OXALATE
     Indication: Depression
     Dosage: 10 MILLIGRAM, QD
     Route: 048
     Dates: start: 20110603
  7. LEXATIN [Concomitant]
     Indication: Anxiety
     Dosage: 3 MILLIGRAM, QD
     Route: 048
     Dates: start: 20110603
  8. METHYLPREDNISOLONE [Concomitant]
     Active Substance: METHYLPREDNISOLONE
     Indication: Immunosuppressant drug therapy
     Dosage: 40 MG, 2X/DAY:BID (EVERY 12 HOURS)
     Route: 048
     Dates: start: 20110603
  9. FOLIC ACID [Concomitant]
     Active Substance: FOLIC ACID
     Indication: Blood disorder
     Dosage: 5 MG, 1X/DAY:QD
     Route: 048
     Dates: start: 20110603
  10. NOXAFIL [Concomitant]
     Active Substance: POSACONAZOLE
     Indication: Blood disorder
     Dosage: 200 MG, 3X/DAY:TID (EVERY 8 HOURS)
     Route: 048
     Dates: start: 20110603
  11. PANTOPRAZOLE SODIUM [Concomitant]
     Active Substance: PANTOPRAZOLE SODIUM
     Indication: Gastrointestinal disorder prophylaxis
     Dosage: 40 MG, 1X/DAY:QD
     Route: 048
     Dates: start: 20110603

REACTIONS (1)
  - Gastroenteritis clostridial [Recovered/Resolved]

NARRATIVE: CASE EVENT DATE: 20110730
